FAERS Safety Report 9249355 (Version 5)
Quarter: 2014Q1

REPORT INFORMATION
  Report Type: Spontaneous
  Country: CA (occurrence: CA)
  Receive Date: 20130423
  Receipt Date: 20140130
  Transmission Date: 20141002
  Serious: Yes (Hospitalization)
  Sender: FDA-Public Use
  Company Number: CA-GLAXOSMITHKLINE-A1018786A

PATIENT
  Age: 24 Year
  Sex: Female
  Weight: 61 kg

DRUGS (6)
  1. BENLYSTA [Suspect]
     Indication: SYSTEMIC LUPUS ERYTHEMATOSUS
     Dosage: 660MG SEE DOSAGE TEXT
     Route: 042
     Dates: start: 20120711, end: 20130428
  2. PREDNISONE [Concomitant]
     Indication: SYSTEMIC LUPUS ERYTHEMATOSUS
     Dosage: 10MG PER DAY
     Route: 048
     Dates: start: 20130514
  3. IMURAN [Concomitant]
  4. ARALEN [Concomitant]
     Indication: SYSTEMIC LUPUS ERYTHEMATOSUS
     Dosage: 200MG PER DAY
     Route: 048
  5. VITAMIN B12 [Concomitant]
     Dosage: 1000MG PER DAY
     Route: 048
  6. VITAMIN D [Concomitant]
     Dosage: 3000IU PER DAY
     Route: 048
     Dates: start: 20130514

REACTIONS (9)
  - Drug ineffective [Not Recovered/Not Resolved]
  - Systemic lupus erythematosus [Recovered/Resolved]
  - Haemoglobin decreased [Unknown]
  - Memory impairment [Unknown]
  - Headache [Unknown]
  - Pyrexia [Recovered/Resolved]
  - Arthralgia [Unknown]
  - Swelling [Unknown]
  - Rash [Unknown]
